FAERS Safety Report 15236462 (Version 1)
Quarter: 2018Q3

REPORT INFORMATION
  Report Type: Spontaneous
  Country: RU (occurrence: RU)
  Receive Date: 20180803
  Receipt Date: 20180803
  Transmission Date: 20181010
  Serious: Yes (Hospitalization, Other)
  Sender: FDA-Public Use
  Company Number: RU-GLAXOSMITHKLINE-RU2018GSK137563

PATIENT
  Age: 55 Year
  Sex: Male

DRUGS (3)
  1. BISOPROLOL [Concomitant]
     Active Substance: BISOPROLOL
     Indication: PRODUCT USED FOR UNKNOWN INDICATION
     Dosage: UNK
  2. CLOPIDOGREL [Concomitant]
     Active Substance: CLOPIDOGREL BISULFATE
     Indication: PRODUCT USED FOR UNKNOWN INDICATION
     Dosage: UNK
  3. OMACOR [Suspect]
     Active Substance: OMEGA-3-ACID ETHYL ESTERS
     Indication: MYOCARDIAL INFARCTION
     Dosage: 100 UG, 1D
     Route: 048

REACTIONS (1)
  - Hypertensive crisis [Unknown]
